FAERS Safety Report 19014954 (Version 2)
Quarter: 2021Q4

REPORT INFORMATION
  Report Type: Spontaneous
  Country: CZ (occurrence: CZ)
  Receive Date: 20210316
  Receipt Date: 20211207
  Transmission Date: 20220303
  Serious: Yes (Hospitalization, Other)
  Sender: FDA-Public Use
  Company Number: CZ-VIIV HEALTHCARE LIMITED-CZ2021EME053964

PATIENT
  Age: 53 Year
  Sex: Male

DRUGS (58)
  1. EPIVIR [Suspect]
     Active Substance: LAMIVUDINE
     Indication: HIV infection
     Dosage: UNK
  2. EPIVIR [Suspect]
     Active Substance: LAMIVUDINE
     Dosage: UNK
  3. EMTRIVA [Suspect]
     Active Substance: EMTRICITABINE
     Indication: HIV infection
     Dosage: UNK
  4. AGENERASE [Suspect]
     Active Substance: AMPRENAVIR
     Indication: HIV infection
     Dosage: UNK
  5. FUZEON [Suspect]
     Active Substance: ENFUVIRTIDE
     Indication: HIV infection
     Dosage: UNK
     Dates: start: 20050808, end: 20061016
  6. HIVID [Suspect]
     Active Substance: ZALCITABINE
     Indication: HIV infection
     Dosage: UNK
     Dates: start: 199502, end: 19990322
  7. HIVID [Suspect]
     Active Substance: ZALCITABINE
     Dosage: UNK
  8. AZITHROMYCIN [Suspect]
     Active Substance: AZITHROMYCIN
     Indication: Opportunistic infection prophylaxis
     Dosage: 500 MG, QOD
  9. INVIRASE [Suspect]
     Active Substance: SAQUINAVIR MESYLATE
     Indication: HIV infection
     Dosage: UNK
     Dates: start: 199502, end: 19990322
  10. INVIRASE [Suspect]
     Active Substance: SAQUINAVIR MESYLATE
     Dosage: UNK
  11. MARAVIROC [Suspect]
     Active Substance: MARAVIROC
     Indication: HIV infection
     Dosage: UNK
     Dates: start: 20140422
  12. MARAVIROC [Suspect]
     Active Substance: MARAVIROC
     Dosage: UNK
  13. KALETRA [Suspect]
     Active Substance: LOPINAVIR\RITONAVIR
     Indication: HIV infection
     Dosage: UNK
     Dates: start: 20050808, end: 20061016
  14. KALETRA [Suspect]
     Active Substance: LOPINAVIR\RITONAVIR
     Dosage: UNK
     Dates: start: 20000912
  15. KALETRA [Suspect]
     Active Substance: LOPINAVIR\RITONAVIR
     Dosage: UNK
  16. TIVICAY [Suspect]
     Active Substance: DOLUTEGRAVIR SODIUM
     Indication: HIV infection
     Dosage: UNK
  17. TIVICAY [Suspect]
     Active Substance: DOLUTEGRAVIR SODIUM
     Dosage: UNK
  18. COTRIMOXAZOLE [Suspect]
     Active Substance: SULFAMETHOXAZOLE\TRIMETHOPRIM
     Indication: Opportunistic infection prophylaxis
     Dosage: 960 MG, QD
  19. COTRIMOXAZOLE [Suspect]
     Active Substance: SULFAMETHOXAZOLE\TRIMETHOPRIM
     Dosage: 960 MG, QD
  20. EFAVIRENZ [Suspect]
     Active Substance: EFAVIRENZ
     Indication: HIV infection
     Dosage: UNK
  21. EFAVIRENZ [Suspect]
     Active Substance: EFAVIRENZ
     Dosage: UNK
  22. PREZISTA [Suspect]
     Active Substance: DARUNAVIR ETHANOLATE
     Indication: HIV infection
     Dosage: UNK
     Dates: start: 20090204
  23. PREZISTA [Suspect]
     Active Substance: DARUNAVIR ETHANOLATE
     Dosage: UNK
  24. TRIZIVIR [Suspect]
     Active Substance: ABACAVIR SULFATE\LAMIVUDINE\ZIDOVUDINE
     Indication: HIV infection
     Dosage: UNK
  25. TRIZIVIR [Suspect]
     Active Substance: ABACAVIR SULFATE\LAMIVUDINE\ZIDOVUDINE
     Dosage: UNK
  26. NORVIR [Suspect]
     Active Substance: RITONAVIR
     Indication: HIV infection
     Dosage: UNK
  27. NORVIR [Suspect]
     Active Substance: RITONAVIR
     Dosage: UNK
  28. ABACAVIR [Suspect]
     Active Substance: ABACAVIR
     Indication: HIV infection
     Dosage: UNK
     Dates: start: 20000403
  29. ABACAVIR [Suspect]
     Active Substance: ABACAVIR
     Dosage: UNK
  30. ZERIT [Suspect]
     Active Substance: STAVUDINE
     Indication: HIV infection
     Dosage: UNK
  31. ZERIT [Suspect]
     Active Substance: STAVUDINE
     Dosage: UNK
  32. COBICISTAT\DARUNAVIR ETHANOLATE [Suspect]
     Active Substance: COBICISTAT\DARUNAVIR ETHANOLATE
     Indication: HIV infection
     Dosage: UNK
     Dates: start: 20170214
  33. COBICISTAT\DARUNAVIR ETHANOLATE [Suspect]
     Active Substance: COBICISTAT\DARUNAVIR ETHANOLATE
     Dosage: UNK
  34. INTELENCE [Suspect]
     Active Substance: ETRAVIRINE
     Indication: HIV infection
     Dosage: UNK
  35. INTELENCE [Suspect]
     Active Substance: ETRAVIRINE
     Dosage: UNK
  36. VIREAD [Suspect]
     Active Substance: TENOFOVIR DISOPROXIL FUMARATE
     Indication: HIV infection
     Dosage: UNK
  37. VIREAD [Suspect]
     Active Substance: TENOFOVIR DISOPROXIL FUMARATE
     Dosage: UNK
  38. CRIXIVAN [Suspect]
     Active Substance: INDINAVIR SULFATE
     Indication: HIV infection
     Dosage: UNK
     Dates: start: 20000403
  39. CRIXIVAN [Suspect]
     Active Substance: INDINAVIR SULFATE
     Dosage: UNK
  40. PACLITAXEL [Suspect]
     Active Substance: PACLITAXEL
     Indication: Kaposi^s sarcoma
     Dosage: UNK
     Dates: start: 2021
  41. APTIVUS [Suspect]
     Active Substance: TIPRANAVIR
     Indication: HIV infection
     Dosage: UNK
  42. ISENTRESS [Suspect]
     Active Substance: RALTEGRAVIR POTASSIUM
     Indication: HIV infection
     Dosage: UNK
  43. BIKTARVY [Suspect]
     Active Substance: BICTEGRAVIR SODIUM\EMTRICITABINE\TENOFOVIR ALAFENAMIDE FUMARATE
     Indication: HIV infection
     Dosage: UNK
     Dates: start: 20200525
  44. BIKTARVY [Suspect]
     Active Substance: BICTEGRAVIR SODIUM\EMTRICITABINE\TENOFOVIR ALAFENAMIDE FUMARATE
     Dosage: UNK
  45. VIRACEPT [Suspect]
     Active Substance: NELFINAVIR MESYLATE
     Indication: HIV infection
     Dosage: UNK
  46. VIRACEPT [Suspect]
     Active Substance: NELFINAVIR MESYLATE
     Dosage: UNK
  47. ZIAGEN [Suspect]
     Active Substance: ABACAVIR SULFATE
     Indication: HIV infection
     Dosage: UNK
     Dates: start: 20000912
  48. ZIAGEN [Suspect]
     Active Substance: ABACAVIR SULFATE
     Dosage: UNK
  49. TRUVADA [Suspect]
     Active Substance: EMTRICITABINE\TENOFOVIR DISOPROXIL FUMARATE
     Indication: HIV infection
     Dosage: UNK
  50. TRUVADA [Suspect]
     Active Substance: EMTRICITABINE\TENOFOVIR DISOPROXIL FUMARATE
     Dosage: UNK
  51. VIDEX [Suspect]
     Active Substance: DIDANOSINE
     Indication: HIV infection
     Dosage: UNK
     Dates: start: 20000912
  52. VIDEX [Suspect]
     Active Substance: DIDANOSINE
     Dosage: UNK
  53. EFAVIRENZ [Suspect]
     Active Substance: EFAVIRENZ
     Indication: HIV infection
     Dosage: UNK
     Dates: start: 20000403
  54. EFAVIRENZ [Suspect]
     Active Substance: EFAVIRENZ
     Dosage: UNK
  55. FLUCONAZOLE [Suspect]
     Active Substance: FLUCONAZOLE
     Indication: Opportunistic infection prophylaxis
     Dosage: 100 MG, QD
  56. FLUCONAZOLE [Suspect]
     Active Substance: FLUCONAZOLE
     Dosage: 100 MG, QD
  57. RETROVIR [Suspect]
     Active Substance: ZIDOVUDINE
     Indication: HIV infection
     Dosage: UNK
     Dates: start: 199502
  58. RETROVIR [Suspect]
     Active Substance: ZIDOVUDINE
     Dosage: UNK

REACTIONS (21)
  - Kaposi^s sarcoma [Unknown]
  - Pancytopenia [Unknown]
  - HIV infection [Unknown]
  - Kaposi^s sarcoma [Unknown]
  - Immunodeficiency [Unknown]
  - Superinfection bacterial [Unknown]
  - HIV infection [Unknown]
  - Pyrexia [Unknown]
  - Urinary tract infection [Recovered/Resolved]
  - Dyslipidaemia [Unknown]
  - Glucose tolerance impaired [Unknown]
  - Hypertension [Unknown]
  - Toxicity to various agents [Unknown]
  - Virologic failure [Unknown]
  - Dysuria [Recovered/Resolved]
  - Laboratory test abnormal [Unknown]
  - Skin lesion [Unknown]
  - Neoplasm progression [Unknown]
  - Drug ineffective [Unknown]
  - Lymphoedema [Unknown]
  - Multiple-drug resistance [Unknown]

NARRATIVE: CASE EVENT DATE: 20181214
